FAERS Safety Report 11548552 (Version 1)
Quarter: 2015Q3

REPORT INFORMATION
  Report Type: Spontaneous
  Country: US (occurrence: US)
  Receive Date: 20150903
  Receipt Date: 20150903
  Transmission Date: 20151125
  Serious: No
  Sender: FDA-Public Use
  Company Number: US-ELI_LILLY_AND_COMPANY-US201304004113

PATIENT
  Sex: Female
  Weight: 75.74 kg

DRUGS (3)
  1. HUMALOG [Suspect]
     Active Substance: INSULIN LISPRO
     Dosage: UNK
     Route: 058
  2. NOVOLOG [Concomitant]
     Active Substance: INSULIN ASPART
  3. LANTUS [Concomitant]
     Active Substance: INSULIN GLARGINE

REACTIONS (2)
  - Blood glucose increased [Unknown]
  - Pain [Unknown]
